FAERS Safety Report 10285928 (Version 2)
Quarter: 2014Q3

REPORT INFORMATION
  Report Type: Report from Study
  Country: IL (occurrence: IL)
  Receive Date: 20140709
  Receipt Date: 20140709
  Transmission Date: 20150326
  Serious: Yes (Hospitalization)
  Sender: FDA-Public Use
  Company Number: PHHO2011IL09015

PATIENT

DRUGS (2)
  1. SOM230 [Suspect]
     Active Substance: PASIREOTIDE
     Dosage: EXTENSION PHASE
     Route: 058
     Dates: start: 20100107
  2. SOM230 [Suspect]
     Active Substance: PASIREOTIDE
     Indication: ACROMEGALY
     Dosage: 600 UG, BID (CORE PHASE)
     Route: 058
     Dates: start: 20090122

REACTIONS (3)
  - Biliary colic [Recovered/Resolved]
  - Pancreatitis acute [Recovered/Resolved]
  - Cholangitis [Recovered/Resolved]

NARRATIVE: CASE EVENT DATE: 20091101
